FAERS Safety Report 19499801 (Version 1)
Quarter: 2021Q3

REPORT INFORMATION
  Report Type: Report from Study
  Country: US (occurrence: US)
  Receive Date: 20210706
  Receipt Date: 20210706
  Transmission Date: 20211014
  Serious: Yes (Other)
  Sender: FDA-Public Use
  Company Number: NVSC2021US142850

PATIENT
  Age: 59 Year
  Sex: Male

DRUGS (2)
  1. BOTOX [Suspect]
     Active Substance: ONABOTULINUMTOXINA
     Indication: PRODUCT USED FOR UNKNOWN INDICATION
     Dosage: UNK
     Route: 065
  2. ENTRESTO [Suspect]
     Active Substance: SACUBITRIL\VALSARTAN
     Indication: PRODUCT USED FOR UNKNOWN INDICATION
     Dosage: UNK(ONCE, EVERY OTHER DAY)
     Route: 048

REACTIONS (13)
  - Cerebrovascular accident [Unknown]
  - Myocardial infarction [Unknown]
  - Gait disturbance [Unknown]
  - Arthralgia [Unknown]
  - Memory impairment [Unknown]
  - Cyst [Unknown]
  - Diplopia [Unknown]
  - Joint injury [Unknown]
  - Diverticulitis [Unknown]
  - Fall [Unknown]
  - Thermal burns of eye [Unknown]
  - Lacrimation increased [Unknown]
  - Visual impairment [Unknown]
